FAERS Safety Report 23391378 (Version 2)
Quarter: 2024Q1

REPORT INFORMATION
  Report Type: Report from Study
  Country: ZA (occurrence: ZA)
  Receive Date: 20240111
  Receipt Date: 20240130
  Transmission Date: 20240410
  Serious: Yes (Death)
  Sender: FDA-Public Use
  Company Number: ZA-BAYER-2024A004438

PATIENT
  Sex: Male

DRUGS (2)
  1. EYLEA [Suspect]
     Active Substance: AFLIBERCEPT
     Indication: Neovascular age-related macular degeneration
     Dosage: 1 X VIAL PER EYE; STRENGTH 40 MG/ML
     Dates: start: 20220516
  2. EYLEA [Suspect]
     Active Substance: AFLIBERCEPT
     Dosage: UNK, STRENGTH 40 MG/ML
     Dates: start: 20230901, end: 20230901

REACTIONS (1)
  - Death [Fatal]

NARRATIVE: CASE EVENT DATE: 20240109
